FAERS Safety Report 23106275 (Version 3)
Quarter: 2023Q4

REPORT INFORMATION
  Report Type: Spontaneous
  Country: JP (occurrence: JP)
  Receive Date: 20231025
  Receipt Date: 20231129
  Transmission Date: 20240109
  Serious: Yes (Hospitalization)
  Sender: FDA-Public Use
  Company Number: JP-Eisai-202303928_LEN-EC_P_1

PATIENT
  Age: 60 Year
  Sex: Female

DRUGS (3)
  1. LENVIMA [Suspect]
     Active Substance: LENVATINIB
     Indication: Endometrial cancer
     Route: 048
     Dates: start: 20230623, end: 20230714
  2. KEYTRUDA [Suspect]
     Active Substance: PEMBROLIZUMAB
     Indication: Endometrial cancer
     Route: 041
     Dates: start: 20230622, end: 20230713
  3. DOXORUBICIN HYDROCHLORIDE [Suspect]
     Active Substance: DOXORUBICIN HYDROCHLORIDE
     Indication: Endometrial cancer
     Dosage: DOSE AND FREQUENCY UNKNOWN
     Route: 065

REACTIONS (9)
  - Bacteraemia [Recovered/Resolved]
  - Pyelonephritis [Recovered/Resolved]
  - Rash [Recovered/Resolved]
  - Dysphonia [Recovering/Resolving]
  - Dyspnoea [Not Recovered/Not Resolved]
  - Troponin increased [Recovering/Resolving]
  - Brain natriuretic peptide increased [Recovering/Resolving]
  - Pyrexia [Recovered/Resolved]
  - Thyroiditis [Recovering/Resolving]

NARRATIVE: CASE EVENT DATE: 20230623
